FAERS Safety Report 5576529-X (Version None)
Quarter: 2007Q4

REPORT INFORMATION
  Report Type: 
  Country: None (occurrence: None)
  Receive Date: 20071228
  Receipt Date: 20071218
  Transmission Date: 20080405
  Serious: Yes (Other)
  Sender: FDA-Public Use
  Company Number: B0498059A

PATIENT
  Age: 74 Year
  Sex: Female
  Weight: 93.8 kg

DRUGS (9)
  1. AVANDIA [Suspect]
     Route: 048
     Dates: start: 20010101
  2. ASPIRIN [Concomitant]
     Indication: CAROTID ARTERY STENOSIS
     Dosage: 75MG PER DAY
  3. UNKNOWN DRUG [Concomitant]
  4. CO-CODAMOL [Concomitant]
     Indication: OSTEOARTHRITIS
     Dosage: 2TAB FOUR TIMES PER DAY
  5. FERROGRAD [Concomitant]
     Dosage: 325MG TWICE PER DAY
  6. GLIMEPIRIDE [Concomitant]
     Dosage: 3MG TWICE PER DAY
  7. OMEPRAZOLE [Concomitant]
     Dosage: 20MG PER DAY
  8. SIMVASTATIN [Concomitant]
     Dosage: 40MG AT NIGHT
     Route: 048
  9. VALSARTAN [Concomitant]
     Dosage: 80MG PER DAY

REACTIONS (5)
  - BRAIN NATRIURETIC PEPTIDE INCREASED [None]
  - CARDIAC FAILURE CONGESTIVE [None]
  - CHEST DISCOMFORT [None]
  - DYSPNOEA [None]
  - OEDEMA PERIPHERAL [None]
